FAERS Safety Report 15300605 (Version 1)
Quarter: 2018Q3

REPORT INFORMATION
  Report Type: Report from Study
  Country: CA (occurrence: CA)
  Receive Date: 20180821
  Receipt Date: 20180821
  Transmission Date: 20181010
  Serious: Yes (Hospitalization, Other)
  Sender: FDA-Public Use
  Company Number: CA-GLAXOSMITHKLINE-CA2018GSK149187

PATIENT
  Age: 59 Year
  Sex: Male

DRUGS (5)
  1. SYMBICORT [Suspect]
     Active Substance: BUDESONIDE\FORMOTEROL FUMARATE DIHYDRATE
     Indication: PRODUCT USED FOR UNKNOWN INDICATION
     Dosage: 2 PUFF(S), BID(200/6)
     Route: 055
  2. VARICELLA?ZOSTER VIRUS VACCINE [Concomitant]
     Indication: PRODUCT USED FOR UNKNOWN INDICATION
     Dosage: UNK
  3. SALBUTAMOL SULPHATE [Suspect]
     Active Substance: ALBUTEROL SULFATE
     Indication: PRODUCT USED FOR UNKNOWN INDICATION
     Dosage: UNK UNK, PRN
  4. PNEUMOVAX VACCINE [Concomitant]
     Indication: PRODUCT USED FOR UNKNOWN INDICATION
     Dosage: UNK
  5. HAEMOPHILUS INFLUENZAE VACCINE [Concomitant]
     Indication: PRODUCT USED FOR UNKNOWN INDICATION
     Dosage: UNK

REACTIONS (18)
  - Upper respiratory tract congestion [Unknown]
  - Nasal congestion [Recovering/Resolving]
  - Blood pressure increased [Unknown]
  - Pulmonary fibrosis [Unknown]
  - Lung infiltration [Unknown]
  - Rhinitis allergic [Unknown]
  - Chest discomfort [Recovering/Resolving]
  - Obstructive airways disorder [Unknown]
  - Dyspnoea [Not Recovered/Not Resolved]
  - Hospitalisation [Unknown]
  - Blood count abnormal [Unknown]
  - Eosinophilia [Unknown]
  - Rhinitis [Unknown]
  - Wheezing [Recovering/Resolving]
  - Bronchopulmonary aspergillosis allergic [Unknown]
  - Asthma [Unknown]
  - Hypertension [Unknown]
  - Loss of personal independence in daily activities [Recovering/Resolving]

NARRATIVE: CASE EVENT DATE: 20170907
